FAERS Safety Report 21205484 (Version 1)
Quarter: 2022Q3

REPORT INFORMATION
  Report Type: Spontaneous
  Country: US (occurrence: None)
  Receive Date: 20220812
  Receipt Date: 20220812
  Transmission Date: 20221027
  Serious: Yes (Other)
  Sender: FDA-Public Use
  Company Number: US-ROCHE-3145237

PATIENT
  Age: 62 Year
  Sex: Male
  Weight: 86.260 kg

DRUGS (2)
  1. ERIVEDGE [Suspect]
     Active Substance: VISMODEGIB
     Indication: Basal cell carcinoma
     Dosage: TAKE ONE TAB FOR 14 DAYS THEN STOP FOR 14 DAYS
     Route: 048
     Dates: start: 20220316, end: 20220417
  2. LOSARTAN [Concomitant]
     Active Substance: LOSARTAN
     Indication: Blood pressure measurement
     Route: 048

REACTIONS (2)
  - Ear swelling [Not Recovered/Not Resolved]
  - Salivary gland cancer [Not Recovered/Not Resolved]

NARRATIVE: CASE EVENT DATE: 20220417
